FAERS Safety Report 8644173 (Version 3)
Quarter: 2012Q4

REPORT INFORMATION
  Report Type: Report from Study
  Country: GB (occurrence: GB)
  Receive Date: 20120629
  Receipt Date: 20121001
  Transmission Date: 20130627
  Serious: Yes (Life-Threatening, Hospitalization, Other)
  Sender: FDA-Public Use
  Company Number: GB-CELGENEUS-167-21880-12060389

PATIENT
  Age: 76 Year
  Sex: Male

DRUGS (6)
  1. REVLIMID [Suspect]
     Indication: MULTIPLE MYELOMA
     Dosage: 25 Milligram
     Route: 048
     Dates: start: 20120106, end: 20120529
  2. REVLIMID [Suspect]
     Dosage: 25 Milligram
     Route: 048
     Dates: end: 20120530
  3. CYCLOPHOSPHAMIDE [Suspect]
     Indication: MULTIPLE MYELOMA
     Route: 048
     Dates: start: 20120106, end: 20120523
  4. CYCLOPHOSPHAMIDE [Suspect]
     Route: 048
     Dates: end: 20120530
  5. DEXAMETHASONE [Suspect]
     Indication: MULTIPLE MYELOMA
     Dosage: 20 Milligram
     Route: 048
     Dates: start: 20120106, end: 20120526
  6. DEXAMETHASONE [Suspect]
     Route: 048
     Dates: end: 20120530

REACTIONS (1)
  - Aspergillosis [Not Recovered/Not Resolved]
